FAERS Safety Report 6179094 (Version 2)
Quarter: 2013Q2

REPORT INFORMATION
  Report Type: Report from Study
  Country: DE (occurrence: DE)
  Receive Date: 20061204
  Receipt Date: 20130624
  Transmission Date: 20140414
  Serious: Yes (Hospitalization)
  Sender: FDA-Public Use
  Company Number: DE-JNJFOC-20061105513

PATIENT
  Age: 21 Year
  Sex: Female
  Weight: 53 kg

DRUGS (5)
  1. INFLIXIMAB [Suspect]
     Indication: CROHN^S DISEASE
     Route: 042
     Dates: start: 20061117, end: 20061117
  2. INFLIXIMAB [Suspect]
     Indication: CROHN^S DISEASE
     Route: 042
     Dates: start: 20050815, end: 20060815
  3. INFLIXIMAB [Suspect]
     Indication: CROHN^S DISEASE
     Route: 042
     Dates: start: 20031215, end: 20031215
  4. ENDOCORT [Concomitant]
     Indication: CROHN^S DISEASE
     Route: 065
     Dates: start: 2002
  5. ZYTRIM [Concomitant]
     Indication: CROHN^S DISEASE
     Route: 065
     Dates: start: 200203

REACTIONS (3)
  - Impaired healing [Unknown]
  - Bartholin^s cyst [Recovered/Resolved]
  - Fistula [Unknown]
